FAERS Safety Report 4843484-7 (Version None)
Quarter: 2005Q4

REPORT INFORMATION
  Report Type: 
  Country: None (occurrence: None)
  Receive Date: 20051101
  Receipt Date: 20050922
  Transmission Date: 20060501
  Serious: No
  Sender: FDA-Public Use
  Company Number: MK200509-0270-1

PATIENT
  Age: 73 Year
  Sex: Female

DRUGS (1)
  1. NEUTROSPEC [Suspect]
     Indication: OSTEOMYELITIS
     Dosage: 21.3 MCI, ONE TIME, IV
     Route: 042
     Dates: start: 20050920, end: 20050920

REACTIONS (1)
  - INJECTION SITE PRURITUS [None]
